FAERS Safety Report 9492627 (Version 1)
Quarter: 2013Q3

REPORT INFORMATION
  Report Type: Report from Study
  Country: JP (occurrence: JP)
  Receive Date: 20130830
  Receipt Date: 20130830
  Transmission Date: 20140515
  Serious: Yes (Death, Hospitalization)
  Sender: FDA-Public Use
  Company Number: JP-TEVA-429650USA

PATIENT
  Age: 83 Year
  Sex: Male
  Weight: 64.8 kg

DRUGS (13)
  1. BENDAMUSTINE [Suspect]
     Indication: DIFFUSE LARGE B-CELL LYMPHOMA
     Route: 042
     Dates: start: 20130416, end: 20130417
  2. BENDAMUSTINE [Suspect]
     Route: 042
     Dates: start: 20130514, end: 20130514
  3. BENDAMUSTINE [Suspect]
     Route: 042
     Dates: start: 20130515, end: 20130515
  4. RITUXIMAB [Suspect]
     Indication: DIFFUSE LARGE B-CELL LYMPHOMA
     Route: 042
     Dates: start: 20130416, end: 20130417
  5. RITUXIMAB [Suspect]
     Route: 042
     Dates: start: 20130514, end: 20130514
  6. PARIET [Concomitant]
     Indication: GASTRITIS PROPHYLAXIS
     Dosage: 10 MILLIGRAM DAILY;
     Route: 048
     Dates: start: 20121018, end: 20130522
  7. FEBURIC [Concomitant]
     Indication: TUMOUR LYSIS SYNDROME
     Dosage: 20 MILLIGRAM DAILY;
     Route: 048
     Dates: start: 20121018, end: 20130522
  8. BAKTAR [Concomitant]
     Indication: INFECTION PROPHYLAXIS
     Dosage: .5 DOSAGE FORMS DAILY;
     Route: 048
     Dates: start: 20121018, end: 20130522
  9. PANTOSIN [Concomitant]
     Indication: CONSTIPATION
     Route: 048
     Dates: start: 20121018, end: 20130522
  10. MAGMITT [Concomitant]
     Indication: CONSTIPATION
     Route: 048
     Dates: start: 20121018, end: 20130522
  11. CALONAL [Concomitant]
     Indication: CANCER PAIN
     Dosage: 1600 MILLIGRAM DAILY;
     Route: 048
     Dates: start: 20121119, end: 20130522
  12. CARVEDILOL [Concomitant]
     Indication: HYPERTENSION
     Dosage: 10 MILLIGRAM DAILY;
     Route: 048
     Dates: start: 20121130, end: 20130522
  13. OXYCONTIN [Concomitant]
     Indication: CANCER PAIN
     Dosage: 20 MILLIGRAM DAILY;
     Route: 048
     Dates: start: 20120513, end: 20130522

REACTIONS (4)
  - Diffuse large B-cell lymphoma [Fatal]
  - Disease progression [Fatal]
  - Enteritis [Recovered/Resolved]
  - Cytomegalovirus viraemia [Not Recovered/Not Resolved]
